FAERS Safety Report 24158866 (Version 2)
Quarter: 2024Q3

REPORT INFORMATION
  Report Type: Spontaneous
  Country: US (occurrence: US)
  Receive Date: 20240731
  Receipt Date: 20240731
  Transmission Date: 20241017
  Serious: Yes (Hospitalization, Other)
  Sender: GILEAD
  Company Number: US-GILEAD-2024-0682460

PATIENT
  Sex: Male

DRUGS (1)
  1. YESCARTA [Suspect]
     Active Substance: AXICABTAGENE CILOLEUCEL
     Indication: Product used for unknown indication
     Dosage: UNK
     Route: 042
     Dates: start: 20240624, end: 20240624

REACTIONS (6)
  - Skin necrosis [Unknown]
  - Peripheral ischaemia [Not Recovered/Not Resolved]
  - Blood pressure abnormal [Unknown]
  - Immune effector cell-associated neurotoxicity syndrome [Unknown]
  - Seizure [Unknown]
  - Cytokine release syndrome [Unknown]
